FAERS Safety Report 8499318-5 (Version None)
Quarter: 2012Q3

REPORT INFORMATION
  Report Type: 
  Country: None (occurrence: None)
  Receive Date: 20120710
  Receipt Date: 20120706
  Transmission Date: 20120928
  Serious: Yes (Death, Hospitalization, Other)
  Sender: FDA-Public Use
  Company Number: PHFR2011GB06293

PATIENT
  Sex: Female

DRUGS (2)
  1. SANDOSTATIN [Suspect]
     Indication: NEUROENDOCRINE TUMOUR
     Dosage: UNK
     Route: 058
  2. ANTIHYPERTENSIVES [Concomitant]
     Indication: ORTHOSTATIC HYPERTENSION
     Route: 065

REACTIONS (4)
  - PERITONITIS [None]
  - HYPOTENSION [None]
  - DEATH [None]
  - SYNCOPE [None]
